FAERS Safety Report 18937208 (Version 1)
Quarter: 2021Q1

REPORT INFORMATION
  Report Type: Other
  Country: US (occurrence: DE)
  Receive Date: 20210224
  Receipt Date: 20210224
  Transmission Date: 20210420
  Serious: Yes (Life-Threatening, Hospitalization, Other)
  Sender: FDA-Public Use
  Company Number: DE-BRECKENRIDGE PHARMACEUTICAL, INC.-2107292

PATIENT
  Age: 6 Year
  Sex: Male
  Weight: 36 kg

DRUGS (1)
  1. METHYLPHENIDATE. [Suspect]
     Active Substance: METHYLPHENIDATE
     Indication: ATTENTION DEFICIT HYPERACTIVITY DISORDER
     Route: 048

REACTIONS (5)
  - Mitral valve incompetence [None]
  - Coronary artery dissection [None]
  - Thrombosis [None]
  - Myocardial infarction [None]
  - Dyskinesia [None]
